FAERS Safety Report 9566216 (Version 1)
Quarter: 2013Q3

REPORT INFORMATION
  Report Type: Spontaneous
  Country: US (occurrence: US)
  Receive Date: 20130930
  Receipt Date: 20130930
  Transmission Date: 20140515
  Serious: No
  Sender: FDA-Public Use
  Company Number: US-ASTRAZENECA-2013SE69642

PATIENT
  Age: 64 Year
  Sex: Female
  Weight: 104.3 kg

DRUGS (8)
  1. BRILINTA [Suspect]
     Indication: STENT PLACEMENT
     Route: 048
     Dates: start: 20130821
  2. AMLODIPINE [Concomitant]
     Indication: BLOOD PRESSURE
  3. GLIPIZIDE [Concomitant]
     Indication: DIABETES MELLITUS
  4. BISOPROLOL [Concomitant]
     Indication: BLOOD PRESSURE
  5. PRAVASTATIN [Concomitant]
  6. GLYBURIDE [Concomitant]
     Indication: DIABETES MELLITUS
  7. ENALAPRIL [Concomitant]
  8. BAYER BABY ASPIRIN [Concomitant]

REACTIONS (2)
  - Panic attack [Not Recovered/Not Resolved]
  - Dyspnoea [Not Recovered/Not Resolved]
